FAERS Safety Report 7154025-6 (Version None)
Quarter: 2010Q4

REPORT INFORMATION
  Report Type: 
  Country: None (occurrence: None)
  Receive Date: 20101213
  Receipt Date: 20101209
  Transmission Date: 20110411
  Serious: Yes (Death, Disabling)
  Sender: FDA-Public Use
  Company Number: PHFR2010GB05838

PATIENT
  Sex: Male

DRUGS (2)
  1. ZOMETA [Suspect]
     Indication: METASTASES TO BONE
     Dosage: UNK
     Route: 042
     Dates: start: 20080401, end: 20090401
  2. SUNITINIB MALATE [Concomitant]
     Indication: RENAL CELL CARCINOMA
     Dosage: 37.5
     Route: 048
     Dates: start: 20080701

REACTIONS (4)
  - ABSCESS [None]
  - DEATH [None]
  - OSTEONECROSIS OF JAW [None]
  - TOOTH LOSS [None]
